FAERS Safety Report 5910762-X (Version None)
Quarter: 2008Q4

REPORT INFORMATION
  Report Type: 
  Country: None (occurrence: None)
  Receive Date: 20081007
  Receipt Date: 20080421
  Transmission Date: 20090506
  Serious: Yes (Other)
  Sender: FDA-Public Use
  Company Number: US-ASTRAZENECA-2008UW08080

PATIENT
  Age: 76 Year
  Sex: Female
  Weight: 76.7 kg

DRUGS (4)
  1. ARIMIDEX [Suspect]
     Indication: BREAST CANCER
     Route: 048
  2. ASPIRIN [Concomitant]
     Route: 048
  3. PRAVACHOL [Concomitant]
  4. LOPRESSOR [Concomitant]

REACTIONS (1)
  - OSTEOPENIA [None]
